FAERS Safety Report 10055026 (Version 2)
Quarter: 2014Q2

REPORT INFORMATION
  Report Type: Spontaneous
  Country: US (occurrence: US)
  Receive Date: 20140402
  Receipt Date: 20140625
  Transmission Date: 20141212
  Serious: No
  Sender: FDA-Public Use
  Company Number: US-SA-2014SA028414

PATIENT
  Age: 39 Year
  Sex: Female
  Weight: 58.08 kg

DRUGS (9)
  1. AUBAGIO [Suspect]
     Indication: MULTIPLE SCLEROSIS
     Route: 065
     Dates: start: 20140210
  2. BACLOFEN [Concomitant]
     Indication: MULTIPLE SCLEROSIS
     Route: 048
     Dates: start: 2007
  3. DULERA [Concomitant]
     Indication: ASTHMA
     Dosage: 2 PUFFS
     Dates: start: 2013
  4. VITAMIN D [Concomitant]
  5. VITAMIN B12 [Concomitant]
  6. CALCIUM [Concomitant]
  7. MAGNESIUM [Concomitant]
  8. FISH OIL [Concomitant]
  9. NEURONTIN [Concomitant]
     Indication: MULTIPLE SCLEROSIS
     Route: 048
     Dates: start: 2007

REACTIONS (1)
  - Thirst [Unknown]
